FAERS Safety Report 11069669 (Version 1)
Quarter: 2015Q2

REPORT INFORMATION
  Report Type: Other
  Country: FR (occurrence: FR)
  Receive Date: 20150427
  Receipt Date: 20150427
  Transmission Date: 20150821
  Serious: Yes (Other)
  Sender: FDA-Public Use
  Company Number: FR-MYLANLABS-2015M1012022

PATIENT

DRUGS (2)
  1. QUINAPRIL/HYDROCHLOROTHIAZIDE MYLAN 20 MG/12,5 MG [Suspect]
     Active Substance: HYDROCHLOROTHIAZIDE\QUINAPRIL HYDROCHLORIDE
     Indication: HYPERTENSION
     Dosage: 1 DF, QD
     Route: 048
     Dates: end: 20150318
  2. RELPAX [Concomitant]
     Active Substance: ELETRIPTAN HYDROBROMIDE
     Indication: MIGRAINE

REACTIONS (2)
  - Palatal oedema [Recovered/Resolved]
  - Dysphonia [None]

NARRATIVE: CASE EVENT DATE: 201411
